FAERS Safety Report 21151183 (Version 1)
Quarter: 2022Q3

REPORT INFORMATION
  Report Type: Report from Study
  Country: IT (occurrence: IT)
  Receive Date: 20220730
  Receipt Date: 20220730
  Transmission Date: 20221027
  Serious: Yes (Other)
  Sender: FDA-Public Use
  Company Number: None

PATIENT
  Age: 68 Year
  Sex: Female

DRUGS (9)
  1. BISOPROLOL [Suspect]
     Active Substance: BISOPROLOL
     Indication: Hypertension
     Dosage: UNIT DOSE : 10 MG , FREQUENCY TIME : 24 HOURS, THERAPY DURATION : 425 DAYS
     Route: 065
     Dates: start: 20210101, end: 20220302
  2. CANRENOIC ACID [Suspect]
     Active Substance: CANRENOIC ACID
     Indication: Hypertension
     Dosage: UNIT DOSE : 50 MG, FREQUENCY TIME : 24 HOURS, THERAPY DURATION : 60 DAYS
     Route: 065
     Dates: start: 20220101, end: 20220302
  3. HYDROCHLOROTHIAZIDE\OLMESARTAN MEDOXOMIL [Suspect]
     Active Substance: HYDROCHLOROTHIAZIDE\OLMESARTAN MEDOXOMIL
     Indication: Hypertension
     Dosage: 40/12.5 MG / DAY, UNIT DOSE : 1 DOSAGE FORMS, FREQUENCY TIME : 24 HOURS, THERAPY DURATION : 60 DAYS
     Dates: start: 20220101, end: 20220302
  4. ALOGLIPTIN BENZOATE [Concomitant]
     Active Substance: ALOGLIPTIN BENZOATE
     Indication: Product used for unknown indication
     Dosage: UNIT DOSE :25 MG, FREQUENCY TIME : 24 HOURS
  5. ATORVASTATIN [Concomitant]
     Active Substance: ATORVASTATIN
     Indication: Product used for unknown indication
     Dosage: UNIT DOSE : 10 MG, FREQUENCY TIME : 24 HOURS
  6. BROMAZEPAM [Concomitant]
     Active Substance: BROMAZEPAM
     Indication: Product used for unknown indication
  7. TRESIBA [Concomitant]
     Active Substance: INSULIN DEGLUDEC
     Indication: Product used for unknown indication
     Dosage: UNIT DOSE : 20 IU, FREQUENCY TIME : 24 HOURS
  8. METFORMIN HYDROCHLORIDE [Concomitant]
     Active Substance: METFORMIN HYDROCHLORIDE
     Indication: Product used for unknown indication
     Dosage: UNIT DOSE : 750 MG, FREQUENCY TIME : 12 HOURS
  9. LANSOPRAZOLE [Concomitant]
     Active Substance: LANSOPRAZOLE
     Indication: Product used for unknown indication
     Dosage: UNIT DOSE : 30 MG, FREQUENCY TIME : 24 HOURS

REACTIONS (3)
  - Hypertensive crisis [Recovered/Resolved]
  - Headache [Recovered/Resolved]
  - Drug ineffective [Recovered/Resolved]

NARRATIVE: CASE EVENT DATE: 20220302
